FAERS Safety Report 20504438 (Version 1)
Quarter: 2022Q1

REPORT INFORMATION
  Report Type: Spontaneous
  Country: CN (occurrence: CN)
  Receive Date: 20220222
  Receipt Date: 20220222
  Transmission Date: 20220424
  Serious: Yes (Hospitalization, Other)
  Sender: FDA-Public Use
  Company Number: CN-BAYER-2022A023806

PATIENT
  Age: 82 Year
  Sex: Male
  Weight: 75 kg

DRUGS (8)
  1. XARELTO [Suspect]
     Active Substance: RIVAROXABAN
     Indication: Atrial fibrillation
     Dosage: 15 MG, QD
     Route: 048
     Dates: start: 20210320, end: 20220210
  2. XARELTO [Suspect]
     Active Substance: RIVAROXABAN
     Indication: Anticoagulant therapy
     Route: 048
  3. ASPIRIN [Suspect]
     Active Substance: ASPIRIN
     Indication: Myocardial infarction
     Dosage: 0.1 G, QD
     Route: 048
     Dates: start: 20210221, end: 20220210
  4. ASPIRIN [Suspect]
     Active Substance: ASPIRIN
     Indication: Platelet aggregation inhibition
  5. LEVAMLODIPINE [Concomitant]
     Active Substance: LEVAMLODIPINE
     Dosage: 2.5 MG, QD
     Route: 048
  6. IRBESARTAN [Concomitant]
     Active Substance: IRBESARTAN
     Dosage: 150 MG, QD
     Route: 048
  7. METFORMIN [Concomitant]
     Active Substance: METFORMIN HYDROCHLORIDE
     Dosage: 0.5 G, BID
     Route: 048
  8. ATORVASTATIN [Concomitant]
     Active Substance: ATORVASTATIN
     Dosage: 1 DF, QD
     Route: 048

REACTIONS (17)
  - Gastrointestinal haemorrhage [Unknown]
  - Cerebral ischaemia [Unknown]
  - Pulmonary fibrosis [Unknown]
  - Aortic arteriosclerosis [Unknown]
  - Arteriosclerosis coronary artery [Unknown]
  - Hepatic cirrhosis [Unknown]
  - Pulmonary calcification [Unknown]
  - Pleural adhesion [Unknown]
  - Pleural calcification [Unknown]
  - Renal mass [Unknown]
  - Benign prostatic hyperplasia [Unknown]
  - Melaena [Unknown]
  - Abdominal discomfort [Unknown]
  - Muscular weakness [Unknown]
  - Tachypnoea [Unknown]
  - Decreased appetite [Unknown]
  - Depressed mood [Unknown]

NARRATIVE: CASE EVENT DATE: 20220208
